FAERS Safety Report 19561730 (Version 2)
Quarter: 2021Q3

REPORT INFORMATION
  Report Type: Spontaneous
  Country: JP (occurrence: JP)
  Receive Date: 20210714
  Receipt Date: 20210722
  Transmission Date: 20211014
  Serious: Yes (Other)
  Sender: FDA-Public Use
  Company Number: JP-ABBVIE-21P-087-3990810-00

PATIENT
  Sex: Female

DRUGS (1)
  1. LEUPRORELIN ACETATE [Suspect]
     Active Substance: LEUPROLIDE ACETATE
     Indication: PRODUCT USED FOR UNKNOWN INDICATION
     Dosage: 3.75 MILLIGRAM, Q4WEEKS
     Route: 050

REACTIONS (11)
  - Injection site induration [Unknown]
  - Malaise [Unknown]
  - Insomnia [Unknown]
  - Back pain [Unknown]
  - Depressed mood [Unknown]
  - Genital haemorrhage [Unknown]
  - Haemorrhage [Unknown]
  - Headache [Unknown]
  - Hot flush [Unknown]
  - Arthralgia [Unknown]
  - Musculoskeletal stiffness [Unknown]
